FAERS Safety Report 15328605 (Version 2)
Quarter: 2018Q4

REPORT INFORMATION
  Report Type: Spontaneous
  Country: BR (occurrence: BR)
  Receive Date: 20180829
  Receipt Date: 20180921
  Transmission Date: 20190204
  Serious: No
  Sender: FDA-Public Use
  Company Number: BR-IGSA-SR10006463

PATIENT
  Age: 32 Year
  Sex: Male
  Weight: 131 kg

DRUGS (4)
  1. ALBUMINA HUMANA GRIFOLS 20% [Suspect]
     Active Substance: ALBUMIN HUMAN
     Dosage: 130 G, SINGLE
     Dates: start: 20180209, end: 20180209
  2. ALBUMINA HUMANA GRIFOLS 20% [Suspect]
     Active Substance: ALBUMIN HUMAN
     Dosage: 130 G, SINGLE
     Dates: start: 20180213, end: 20180213
  3. ALBUMINA HUMANA GRIFOLS 20% [Suspect]
     Active Substance: ALBUMIN HUMAN
     Dosage: 130 G, SINGLE
     Dates: start: 20180207, end: 20180207
  4. ALBUMINA HUMANA GRIFOLS 20% [Suspect]
     Active Substance: ALBUMIN HUMAN
     Indication: PLASMAPHERESIS
     Dosage: 130 G, SINGLE
     Route: 042
     Dates: start: 20180205, end: 20180205

REACTIONS (1)
  - Pruritus [Recovered/Resolved]

NARRATIVE: CASE EVENT DATE: 20180205
